FAERS Safety Report 6166316-6 (Version None)
Quarter: 2009Q2

REPORT INFORMATION
  Report Type: 
  Country: None (occurrence: None)
  Receive Date: 20090422
  Receipt Date: 20090422
  Transmission Date: 20091009
  Serious: No
  Sender: FDA-Public Use
  Company Number: None

PATIENT
  Age: 64 Year
  Sex: Male
  Weight: 81.6475 kg

DRUGS (1)
  1. LEVAQUIN [Suspect]
     Indication: DIVERTICULITIS
     Dosage: 500MG IV BAG DAILY
     Dates: end: 20090301

REACTIONS (4)
  - INJECTION SITE DISCOLOURATION [None]
  - OROPHARYNGEAL PAIN [None]
  - PHARYNGEAL ERYTHEMA [None]
  - VENOUS THROMBOSIS [None]
